FAERS Safety Report 16543837 (Version 2)
Quarter: 2019Q3

REPORT INFORMATION
  Report Type: Spontaneous
  Country: US (occurrence: US)
  Receive Date: 20190709
  Receipt Date: 20190909
  Transmission Date: 20191004
  Serious: Yes (Death, Other)
  Sender: FDA-Public Use
  Company Number: US-PFIZER INC-2019291892

PATIENT
  Age: 82 Year
  Sex: Male
  Weight: 76.2 kg

DRUGS (4)
  1. ZOLOFT [Suspect]
     Active Substance: SERTRALINE HYDROCHLORIDE
     Dosage: 25 MG, 1X/DAY
     Dates: start: 20190626, end: 20190721
  2. TAMSULOSIN [Concomitant]
     Active Substance: TAMSULOSIN
     Dosage: 0.4 MG, 1X/DAY
     Dates: start: 201711, end: 20190721
  3. MEMANTINE. [Concomitant]
     Active Substance: MEMANTINE
     Dosage: 5 MG, 2X/DAY
     Dates: start: 201505, end: 20190721
  4. ZOLOFT [Suspect]
     Active Substance: SERTRALINE HYDROCHLORIDE
     Indication: ANXIETY
     Dosage: 12.5 MG, 1X/DAY
     Route: 048
     Dates: start: 20190626

REACTIONS (2)
  - Loss of consciousness [Unknown]
  - Pneumonia aspiration [Fatal]

NARRATIVE: CASE EVENT DATE: 20190630
